FAERS Safety Report 5352005-4 (Version None)
Quarter: 2007Q2

REPORT INFORMATION
  Report Type: 
  Country: None (occurrence: None)
  Receive Date: 20070611
  Receipt Date: 20070607
  Transmission Date: 20071010
  Serious: Yes (Life-Threatening, Other)
  Sender: FDA-Public Use
  Company Number: PHBS2007JP09479

PATIENT

DRUGS (1)
  1. VOLTAREN [Suspect]
     Dosage: 1 SUPP/DAY
     Route: 054

REACTIONS (3)
  - CARDIO-RESPIRATORY ARREST [None]
  - HEPATIC ENZYME INCREASED [None]
  - HEPATITIS FULMINANT [None]
